FAERS Safety Report 9820929 (Version 3)
Quarter: 2014Q1

REPORT INFORMATION
  Report Type: Report from Study
  Country: US (occurrence: US)
  Receive Date: 20140116
  Receipt Date: 20140116
  Transmission Date: 20141002
  Serious: No
  Sender: FDA-Public Use
  Company Number: US-B.I. PHARMACEUTICALS,INC./RIDGEFIELD-2013-BI-32924BI

PATIENT
  Age: 65 Year
  Sex: Female

DRUGS (11)
  1. GILOTRIF [Suspect]
     Indication: NON-SMALL CELL LUNG CANCER
     Dosage: 40 MG
     Route: 048
     Dates: start: 201307
  2. GILOTRIF [Suspect]
     Dosage: 40 MG
     Route: 048
     Dates: start: 201309
  3. GILOTRIF [Suspect]
     Dosage: 40 MG
     Route: 048
     Dates: start: 20131018, end: 20131115
  4. ZYRTEC [Concomitant]
     Indication: HYPERSENSITIVITY
  5. CRESTOR [Concomitant]
     Indication: BLOOD CHOLESTEROL INCREASED
  6. ACIPHEX [Concomitant]
     Indication: DYSPEPSIA
  7. METOPROLOL [Concomitant]
  8. LUBRICATING EYE DAYS-BLINX [Concomitant]
  9. DOXYCYCLINE [Concomitant]
     Indication: RASH
  10. BACITRACIN [Concomitant]
  11. NEOSPORIN OINTMENT [Concomitant]

REACTIONS (10)
  - Skin reaction [Unknown]
  - Decreased appetite [Unknown]
  - Nail infection [Unknown]
  - Stomatitis [Unknown]
  - Laceration [Not Recovered/Not Resolved]
  - Pain in extremity [Not Recovered/Not Resolved]
  - Growth of eyelashes [Not Recovered/Not Resolved]
  - Laceration [Not Recovered/Not Resolved]
  - Nasopharyngitis [Unknown]
  - Drug ineffective [Not Recovered/Not Resolved]
